FAERS Safety Report 24268084 (Version 1)
Quarter: 2024Q3

REPORT INFORMATION
  Report Type: Spontaneous
  Country: US (occurrence: US)
  Receive Date: 20240830
  Receipt Date: 20240830
  Transmission Date: 20241016
  Serious: No
  Sender: ABBVIE
  Company Number: US-ABBVIE-5899433

PATIENT
  Sex: Female

DRUGS (2)
  1. BOTOX COSMETIC [Suspect]
     Active Substance: ONABOTULINUMTOXINA
     Indication: Lip cosmetic procedure
     Dosage: TIME INTERVAL: AS NECESSARY: UNIT
     Route: 065
     Dates: start: 20240813, end: 20240813
  2. BOTOX COSMETIC [Suspect]
     Active Substance: ONABOTULINUMTOXINA
     Indication: Lip cosmetic procedure
     Dosage: TIME INTERVAL: AS NECESSARY: UNIT
     Route: 065
     Dates: start: 20240813, end: 20240813

REACTIONS (3)
  - Facial paresis [Not Recovered/Not Resolved]
  - Aphasia [Not Recovered/Not Resolved]
  - Papule [Not Recovered/Not Resolved]

NARRATIVE: CASE EVENT DATE: 20240820
